FAERS Safety Report 23804817 (Version 5)
Quarter: 2025Q1

REPORT INFORMATION
  Report Type: Other
  Country: MY (occurrence: MY)
  Receive Date: 20240501
  Receipt Date: 20250131
  Transmission Date: 20250408
  Serious: Yes (Hospitalization)
  Sender: BIOGEN
  Company Number: MY-BIOGEN-2024BI01262193

PATIENT
  Age: 3 Year
  Sex: Male

DRUGS (1)
  1. SPINRAZA [Suspect]
     Active Substance: NUSINERSEN
     Indication: Spinal muscular atrophy
     Route: 050
     Dates: start: 20231214

REACTIONS (3)
  - Hypoxia [Unknown]
  - Body temperature increased [Unknown]
  - Catheter site infection [Unknown]

NARRATIVE: CASE EVENT DATE: 20240417
